FAERS Safety Report 9189691 (Version 3)
Quarter: 2013Q3

REPORT INFORMATION
  Report Type: Spontaneous
  Country: US (occurrence: US)
  Receive Date: 20130326
  Receipt Date: 20130718
  Transmission Date: 20140515
  Serious: Yes (Hospitalization, Other)
  Sender: FDA-Public Use
  Company Number: US-BAYER-2013-037476

PATIENT
  Age: 36 Year
  Sex: Female

DRUGS (6)
  1. YAZ [Suspect]
     Indication: ACNE
     Dosage: UNK
     Dates: start: 2006, end: 2010
  2. YASMIN [Suspect]
     Indication: ACNE
     Dosage: UNK
     Dates: start: 2006, end: 2010
  3. IBUPROFEN [Concomitant]
  4. INDERAL [Concomitant]
     Indication: TENSION HEADACHE
  5. MOTRIN [Concomitant]
  6. MVI [Concomitant]

REACTIONS (5)
  - Deep vein thrombosis [Recovered/Resolved]
  - Deep vein thrombosis [Recovered/Resolved]
  - Injury [None]
  - Pain [None]
  - Pain [None]
